FAERS Safety Report 7433984-8 (Version None)
Quarter: 2011Q2

REPORT INFORMATION
  Report Type: 
  Country: None (occurrence: None)
  Receive Date: 20110420
  Receipt Date: 20110420
  Transmission Date: 20111010
  Serious: Yes (Disabling, Other)
  Sender: FDA-Public Use
  Company Number: None

PATIENT
  Age: 60 Year
  Sex: Female
  Weight: 107.9561 kg

DRUGS (19)
  1. DABIGATRAN 150 MG BOEHRINGER-INGELHEIM [Suspect]
     Indication: ATRIAL FIBRILLATION
     Dosage: 150 MG TWICE DAILY PO
     Route: 048
     Dates: start: 20110216, end: 20110315
  2. LIRAGLUTIDE [Concomitant]
  3. LANSOPRAZOLE [Concomitant]
  4. METFORMIN HYDROCHLORIDE [Concomitant]
  5. WARFARIN [Concomitant]
  6. DUCOSATE SODIUM [Concomitant]
  7. ALPRAZOLAM [Concomitant]
  8. POTASSIUM CHLORIDE [Concomitant]
  9. OLMESARTAN/HCTZ [Concomitant]
  10. NITROFURANTOIN [Concomitant]
  11. MAGNESIUM OXIDE [Concomitant]
  12. CYANOCOBALAMIN [Concomitant]
  13. DILTIAZEM [Concomitant]
  14. SOTALOL HCL [Concomitant]
  15. APAP TAB [Concomitant]
  16. BUPROPION HCL [Concomitant]
  17. ATORVASTATIN [Concomitant]
  18. CYCLOBENZAPRINE [Concomitant]
  19. LEVOTHYROXINE SODIUM [Concomitant]

REACTIONS (1)
  - THROMBOCYTOPENIA [None]
